FAERS Safety Report 15799941 (Version 1)
Quarter: 2019Q1

REPORT INFORMATION
  Report Type: Spontaneous
  Country: IT (occurrence: IT)
  Receive Date: 20190108
  Receipt Date: 20190108
  Transmission Date: 20190417
  Serious: Yes (Hospitalization)
  Sender: FDA-Public Use
  Company Number: IT-MYLANLABS-2019M1000918

PATIENT
  Age: 36 Year
  Sex: Male

DRUGS (2)
  1. ARIPIPRAZOLE. [Suspect]
     Active Substance: ARIPIPRAZOLE
     Indication: PSYCHIATRIC DISORDER PROPHYLAXIS
     Route: 065
  2. HALOPERIDOL. [Suspect]
     Active Substance: HALOPERIDOL
     Indication: SCHIZOPHRENIA
     Dosage: LONG ACTING DEPOT THERAPY
     Route: 030

REACTIONS (3)
  - Neuroleptic malignant syndrome [Recovering/Resolving]
  - Condition aggravated [Recovering/Resolving]
  - Central nervous system lesion [Recovered/Resolved]
